FAERS Safety Report 6931351-4 (Version None)
Quarter: 2010Q3

REPORT INFORMATION
  Report Type: 
  Country: None (occurrence: None)
  Receive Date: 20100819
  Receipt Date: 20100812
  Transmission Date: 20110219
  Serious: Yes (Hospitalization)
  Sender: FDA-Public Use
  Company Number: DE-TEVA-244675ISR

PATIENT
  Age: 81 Year
  Sex: Male
  Weight: 81.1 kg

DRUGS (2)
  1. PANTOPRAZOLE [Suspect]
     Indication: GASTRITIS
     Route: 048
     Dates: start: 20100414
  2. CEFACLOR [Suspect]
     Indication: URINARY TRACT INFECTION
     Route: 048
     Dates: start: 20100423, end: 20100506

REACTIONS (1)
  - DIARRHOEA [None]
